FAERS Safety Report 7406855-0 (Version None)
Quarter: 2011Q2

REPORT INFORMATION
  Report Type: 
  Country: None (occurrence: None)
  Receive Date: 20110406
  Receipt Date: 20110406
  Transmission Date: 20111010
  Serious: Yes (Hospitalization)
  Sender: FDA-Public Use
  Company Number: None

PATIENT
  Sex: Female

DRUGS (2)
  1. AFINITOR [Suspect]
     Dosage: 2.5 MG QD PO
     Route: 048
     Dates: start: 20110225
  2. AFINITOR [Suspect]
     Dosage: 2.5 MG QD PO
     Route: 048
     Dates: start: 20110331

REACTIONS (5)
  - DYSPHAGIA [None]
  - HEADACHE [None]
  - NECK PAIN [None]
  - BACK PAIN [None]
  - MUSCULOSKELETAL PAIN [None]
